FAERS Safety Report 15101120 (Version 1)
Quarter: 2018Q2

REPORT INFORMATION
  Report Type: Spontaneous
  Country: US (occurrence: US)
  Receive Date: 20180611
  Receipt Date: 20180611
  Transmission Date: 20180711
  Serious: No
  Sender: FDA-Public Use
  Company Number: None

PATIENT
  Age: 58 Year
  Sex: Female

DRUGS (1)
  1. SIMPONI [Suspect]
     Active Substance: GOLIMUMAB
     Dosage: ?          OTHER FREQUENCY:OTHER;?
     Route: 058

REACTIONS (8)
  - Swelling [None]
  - Rash [None]
  - Dry throat [None]
  - Lethargy [None]
  - Dysphagia [None]
  - Hypersensitivity [None]
  - Nausea [None]
  - Fluid retention [None]

NARRATIVE: CASE EVENT DATE: 20180501
